FAERS Safety Report 5500049-1 (Version None)
Quarter: 2007Q4

REPORT INFORMATION
  Report Type: 
  Country: None (occurrence: None)
  Receive Date: 20071024
  Receipt Date: 20071008
  Transmission Date: 20080405
  Serious: Yes (Hospitalization, Other)
  Sender: FDA-Public Use
  Company Number: S07-GER-00142-01

PATIENT
  Age: 26 Year
  Sex: Female
  Weight: 120 kg

DRUGS (7)
  1. ESCITALOPRAM [Suspect]
     Indication: DEPRESSION
  2. IRON [Concomitant]
  3. FOLIC ACID [Concomitant]
  4. MINERALS NOS [Concomitant]
  5. JOD (IODINE) [Concomitant]
  6. ENOXAPARIN SODIUM [Concomitant]
  7. MAGNO SANOL (MAGNESIUM) [Concomitant]

REACTIONS (6)
  - CAESAREAN SECTION [None]
  - DRUG EXPOSURE DURING PREGNANCY [None]
  - OBESITY [None]
  - PREGNANCY [None]
  - SCIATICA [None]
  - SYMPHYSIOLYSIS [None]
